FAERS Safety Report 4801065-5 (Version None)
Quarter: 2005Q4

REPORT INFORMATION
  Report Type: 
  Country: None (occurrence: None)
  Receive Date: 20051012
  Receipt Date: 20050929
  Transmission Date: 20060501
  Serious: Yes (Death, Hospitalization, Other)
  Sender: FDA-Public Use
  Company Number: 2005118568

PATIENT
  Age: 71 Year
  Sex: Male

DRUGS (2)
  1. VFEND [Suspect]
     Indication: FUNGAEMIA
     Dosage: 400 MG (200 MG)
     Dates: start: 20050810, end: 20050823
  2. MICAFUNGIN (MICAFUNGIN) [Concomitant]

REACTIONS (11)
  - BLOOD BILIRUBIN INCREASED [None]
  - BLOOD CREATINE INCREASED [None]
  - BLOOD UREA INCREASED [None]
  - DISSEMINATED INTRAVASCULAR COAGULATION [None]
  - HYPOVENTILATION [None]
  - JAUNDICE [None]
  - MULTI-ORGAN FAILURE [None]
  - RENAL DISORDER [None]
  - SOMNOLENCE [None]
  - URINARY RETENTION [None]
  - URINE OUTPUT DECREASED [None]
